FAERS Safety Report 5714614-X (Version None)
Quarter: 2008Q2

REPORT INFORMATION
  Report Type: 
  Country: None (occurrence: None)
  Receive Date: 20080423
  Receipt Date: 20080416
  Transmission Date: 20081010
  Serious: Yes (Hospitalization, Disabling, Other)
  Sender: FDA-Public Use
  Company Number: B0490538A

PATIENT
  Age: 3 Year
  Sex: Male

DRUGS (2)
  1. ALBENDAZOLE [Suspect]
     Dosage: 400MG SINGLE DOSE
     Route: 048
     Dates: start: 20070624, end: 20070624
  2. DIETHYLCARBAMAZINE CITRATE [Suspect]
     Dosage: 2TAB SINGLE DOSE
     Route: 048
     Dates: start: 20070624, end: 20070624

REACTIONS (5)
  - GUILLAIN-BARRE SYNDROME [None]
  - MONOPLEGIA [None]
  - MUSCULAR WEAKNESS [None]
  - PAIN [None]
  - PARAPARESIS [None]
